FAERS Safety Report 11005818 (Version 3)
Quarter: 2015Q2

REPORT INFORMATION
  Report Type: Spontaneous
  Country: JP (occurrence: JP)
  Receive Date: 20150409
  Receipt Date: 20150421
  Transmission Date: 20150821
  Serious: Yes (Life-Threatening, Other)
  Sender: FDA-Public Use
  Company Number: JP-ABBVIE-15P-087-1373278-00

PATIENT
  Age: 38 Year
  Sex: Female
  Weight: 55.4 kg

DRUGS (3)
  1. NOLVADEX [Concomitant]
     Active Substance: TAMOXIFEN CITRATE
     Indication: PRODUCT USED FOR UNKNOWN INDICATION
     Dates: start: 200510
  2. CRESTOR [Concomitant]
     Active Substance: ROSUVASTATIN CALCIUM
     Indication: PRODUCT USED FOR UNKNOWN INDICATION
     Dates: start: 200510
  3. LEUPLIN SR FOR INJECTION KIT 11.25 [Suspect]
     Active Substance: LEUPROLIDE ACETATE
     Indication: BREAST CANCER
     Dosage: REGIMEN #1
     Route: 058
     Dates: start: 201112

REACTIONS (1)
  - Benign neoplasm [Recovered/Resolved]

NARRATIVE: CASE EVENT DATE: 20150129
